FAERS Safety Report 5780981-4 (Version None)
Quarter: 2008Q2

REPORT INFORMATION
  Report Type: 
  Country: None (occurrence: None)
  Receive Date: 20080618
  Receipt Date: 20080605
  Transmission Date: 20081010
  Serious: Yes (Hospitalization)
  Sender: FDA-Public Use
  Company Number: 2008AL004980

PATIENT
  Age: 67 Year
  Sex: Female
  Weight: 121.1104 kg

DRUGS (1)
  1. DIGOXIN [Suspect]

REACTIONS (6)
  - DIZZINESS [None]
  - DRUG TOXICITY [None]
  - HEADACHE [None]
  - MALAISE [None]
  - NAUSEA [None]
  - VISUAL DISTURBANCE [None]
